FAERS Safety Report 18922646 (Version 2)
Quarter: 2021Q2

REPORT INFORMATION
  Report Type: Report from Study
  Country: US (occurrence: US)
  Receive Date: 20210222
  Receipt Date: 20210618
  Transmission Date: 20210717
  Serious: No
  Sender: FDA-Public Use
  Company Number: NVSC2021US041181

PATIENT
  Age: 68 Year
  Sex: Male

DRUGS (2)
  1. ENTRESTO [Suspect]
     Active Substance: SACUBITRIL\VALSARTAN
     Indication: PRODUCT USED FOR UNKNOWN INDICATION
     Dosage: 24.26 MG
     Route: 048
  2. ENTRESTO [Suspect]
     Active Substance: SACUBITRIL\VALSARTAN
     Dosage: UNK
     Route: 048
     Dates: start: 202102

REACTIONS (6)
  - Feeling abnormal [Recovering/Resolving]
  - Product dose omission issue [Recovering/Resolving]
  - Asthenia [Recovering/Resolving]
  - Disturbance in attention [Recovering/Resolving]
  - Cough [Unknown]
  - Chest discomfort [Recovering/Resolving]

NARRATIVE: CASE EVENT DATE: 202105
